FAERS Safety Report 5131081-8 (Version None)
Quarter: 2006Q3

REPORT INFORMATION
  Report Type: 
  Country: None (occurrence: None)
  Receive Date: 20060825
  Receipt Date: 20060624
  Transmission Date: 20061208
  Serious: Yes (Other)
  Sender: FDA-Public Use
  Company Number: 2005092455

PATIENT
  Age: 62 Year
  Sex: Female
  Weight: 53.978 kg

DRUGS (7)
  1. VFEND [Suspect]
     Indication: ASPERGILLOSIS
     Dosage: (2 IN 1 D),ORAL
     Route: 048
     Dates: start: 20050301
  2. VFEND [Suspect]
     Dosage: INTRAVENOUS
     Route: 042
     Dates: end: 20050301
  3. RIFAMPICIN [Concomitant]
  4. BIAXIN [Concomitant]
  5. ALL OTHER THERAPEUTIC PRODUCTS (ALL OTHER THERAPEUTIC PRODUCTS) [Concomitant]
  6. ACTONEL [Concomitant]
  7. .. [Concomitant]

REACTIONS (5)
  - DRY SKIN [None]
  - PHOTOSENSITIVITY REACTION [None]
  - PIGMENTATION DISORDER [None]
  - RASH [None]
  - SKIN EXFOLIATION [None]
